FAERS Safety Report 11976805 (Version 3)
Quarter: 2016Q3

REPORT INFORMATION
  Report Type: Report from Study
  Country: DE (occurrence: DE)
  Receive Date: 20160129
  Receipt Date: 20160705
  Transmission Date: 20161109
  Serious: Yes (Hospitalization, Other)
  Sender: FDA-Public Use
  Company Number: DE-BRISTOL-MYERS SQUIBB COMPANY-BMS-2016-004706

PATIENT
  Age: 81 Year
  Sex: Male
  Weight: 99 kg

DRUGS (2)
  1. APIXABAN [Suspect]
     Active Substance: APIXABAN
     Indication: CEREBROVASCULAR ACCIDENT PROPHYLAXIS
     Dosage: 5 MG, BID
     Route: 048
     Dates: start: 20130323
  2. APIXABAN [Suspect]
     Active Substance: APIXABAN
     Dosage: 2.5 MG, BID
     Route: 048

REACTIONS (7)
  - Cerebrovascular accident [Unknown]
  - Ventricular fibrillation [Unknown]
  - Facial bones fracture [Unknown]
  - Hypokalaemia [Unknown]
  - Fall [Unknown]
  - Laceration [Unknown]
  - Venous thrombosis [Unknown]

NARRATIVE: CASE EVENT DATE: 20151214
